FAERS Safety Report 8775769 (Version 1)
Quarter: 2012Q4

REPORT INFORMATION
  Report Type: 
  Country: KE (occurrence: KE)
  Receive Date: 20120910
  Receipt Date: 20120910
  Transmission Date: 20130627
  Serious: Yes (Death, Other)
  Sender: FDA-Public Use
  Company Number: PHHY2006KE009616

PATIENT
  Sex: Male

DRUGS (1)
  1. GLIVEC [Suspect]
     Indication: CHRONIC MYELOID LEUKAEMIA
     Dates: start: 20040909

REACTIONS (4)
  - Haemorrhage intracranial [Fatal]
  - Blindness [Unknown]
  - Retinal haemorrhage [Unknown]
  - Blast crisis in myelogenous leukaemia [Unknown]
